FAERS Safety Report 10712478 (Version 1)
Quarter: 2015Q1

REPORT INFORMATION
  Report Type: Spontaneous
  Country: US (occurrence: US)
  Receive Date: 20150115
  Receipt Date: 20150115
  Transmission Date: 20150721
  Serious: No
  Sender: FDA-Public Use
  Company Number: US-AMGEN-USASL2014094948

PATIENT
  Age: 62 Year
  Sex: Male

DRUGS (1)
  1. ENBREL [Suspect]
     Active Substance: ETANERCEPT
     Indication: RHEUMATOID ARTHRITIS
     Dosage: 50 MG, QWK
     Route: 058
     Dates: start: 20140702

REACTIONS (4)
  - Injection site pain [Recovered/Resolved]
  - Arthralgia [Not Recovered/Not Resolved]
  - Nasopharyngitis [Unknown]
  - Musculoskeletal discomfort [Not Recovered/Not Resolved]

NARRATIVE: CASE EVENT DATE: 2014
